FAERS Safety Report 8171605-X (Version None)
Quarter: 2012Q1

REPORT INFORMATION
  Report Type: 
  Country: None (occurrence: None)
  Receive Date: 20120228
  Receipt Date: 20120220
  Transmission Date: 20120608
  Serious: Yes (Other)
  Sender: FDA-Public Use
  Company Number: GB-ROXANE LABORATORIES, INC.-2012-RO-00683RO

PATIENT
  Age: 57 Year
  Sex: Female

DRUGS (10)
  1. AMLODIPINE [Suspect]
     Indication: HYPERTENSION
  2. ATENOLOL [Suspect]
     Indication: HYPERTENSION
  3. DIGOXIN [Suspect]
  4. METFORMIN HCL [Suspect]
     Indication: TYPE 2 DIABETES MELLITUS
  5. MYCOPHENOLATE MOFETIL [Suspect]
     Indication: IMMUNOSUPPRESSANT DRUG THERAPY
  6. ENALAPRIL MALEATE [Suspect]
     Indication: HYPERTENSION
  7. PREDNISONE [Suspect]
     Indication: IMMUNOSUPPRESSANT DRUG THERAPY
  8. TRIAMTERENE [Suspect]
     Indication: HYPERTENSION
  9. INSULIN [Suspect]
     Indication: TYPE 2 DIABETES MELLITUS
  10. POTASSIUM CHLORIDE [Suspect]
     Indication: HYPOKALAEMIA

REACTIONS (1)
  - HYPERALDOSTERONISM [None]
